FAERS Safety Report 4822940-1 (Version None)
Quarter: 2005Q4

REPORT INFORMATION
  Report Type: 
  Country: None (occurrence: None)
  Receive Date: 20051107
  Receipt Date: 20051107
  Transmission Date: 20060501
  Serious: Yes (Other)
  Sender: FDA-Public Use
  Company Number: None

PATIENT
  Age: 27 Year
  Sex: Female
  Weight: 52.1637 kg

DRUGS (1)
  1. DEPO-PROVERA [Suspect]
     Indication: CONTRACEPTION
     Dosage: SHOT     EVERY 3 MONTHS    IM
     Route: 030
     Dates: start: 20020901, end: 20030901

REACTIONS (5)
  - ABDOMINAL DISTENSION [None]
  - DYSPAREUNIA [None]
  - LIBIDO DECREASED [None]
  - VULVOVAGINAL DRYNESS [None]
  - WEIGHT INCREASED [None]
